FAERS Safety Report 7511872-6 (Version None)
Quarter: 2011Q2

REPORT INFORMATION
  Report Type: 
  Country: None (occurrence: None)
  Receive Date: 20110531
  Receipt Date: 20110520
  Transmission Date: 20111010
  Serious: Yes (Hospitalization, Other)
  Sender: FDA-Public Use
  Company Number: US-ELI_LILLY_AND_COMPANY-US201103006438

PATIENT
  Age: 56 Year
  Sex: Male
  Weight: 115 kg

DRUGS (6)
  1. PROSCAR [Concomitant]
     Dosage: 5 MG, UNKNOWN
     Route: 065
  2. EFFIENT [Suspect]
     Indication: STENT PLACEMENT
     Dosage: 10 MG, QD
     Route: 048
     Dates: start: 20100601
  3. ASPIRIN [Concomitant]
     Dosage: 81 MG, UNKNOWN
     Route: 065
  4. FLOMAX [Concomitant]
     Dosage: UNK UNK, UNKNOWN
     Route: 065
  5. BYSTOLIC [Concomitant]
     Dosage: UNK
     Route: 065
  6. CLOPIDOGREL [Concomitant]
     Dosage: UNK, UNKNOWN
     Route: 065

REACTIONS (4)
  - BLOOD URINE PRESENT [None]
  - HAEMORRHAGE URINARY TRACT [None]
  - URINARY RETENTION [None]
  - CORONARY ARTERIAL STENT INSERTION [None]
